FAERS Safety Report 5157562-9 (Version None)
Quarter: 2006Q4

REPORT INFORMATION
  Report Type: 
  Country: None (occurrence: None)
  Receive Date: 20061127
  Receipt Date: 20061117
  Transmission Date: 20070319
  Serious: Yes (Death)
  Sender: FDA-Public Use
  Company Number: GR-GLAXOSMITHKLINE-B0447838A

PATIENT
  Age: 73 Year
  Sex: Female
  Weight: 64 kg

DRUGS (2)
  1. SEROXAT [Suspect]
     Indication: DEPRESSION
     Dosage: 20MG PER DAY
     Route: 048
     Dates: start: 20060820
  2. XANAX [Concomitant]
     Dosage: .75MG PER DAY
     Route: 048

REACTIONS (1)
  - CEREBRAL HAEMORRHAGE [None]
